FAERS Safety Report 7748221-4 (Version None)
Quarter: 2011Q3

REPORT INFORMATION
  Report Type: 
  Country: None (occurrence: None)
  Receive Date: 20110913
  Receipt Date: 20110628
  Transmission Date: 20111222
  Serious: No
  Sender: FDA-Public Use
  Company Number: US-ELI_LILLY_AND_COMPANY-US201107000063

PATIENT
  Sex: Female

DRUGS (3)
  1. NSAID'S [Concomitant]
  2. ANALGESIC                          /00735901/ [Concomitant]
  3. CYMBALTA [Suspect]
     Indication: BACK PAIN
     Dosage: 30 MG, QD
     Dates: start: 20110601

REACTIONS (3)
  - DISORIENTATION [None]
  - HEPATIC ENZYME INCREASED [None]
  - DIZZINESS [None]
